FAERS Safety Report 17983417 (Version 3)
Quarter: 2020Q3

REPORT INFORMATION
  Report Type: Report from Study
  Country: CO (occurrence: CO)
  Receive Date: 20200706
  Receipt Date: 20200817
  Transmission Date: 20201103
  Serious: Yes (Hospitalization, Other)
  Sender: FDA-Public Use
  Company Number: CO-ASTELLAS-2019US039361

PATIENT
  Age: 22 Year
  Sex: Female
  Weight: 60 kg

DRUGS (10)
  1. PREDNISOLONE. [Concomitant]
     Active Substance: PREDNISOLONE
     Route: 048
     Dates: start: 20111207
  2. FERROUS SULFATE. [Concomitant]
     Active Substance: FERROUS SULFATE
     Indication: PRODUCT USED FOR UNKNOWN INDICATION
     Dosage: 1 DF, ONCE DAILY (THREE MONTHS AGO)
     Route: 048
  3. TACROLIMUS. [Suspect]
     Active Substance: TACROLIMUS
     Dosage: 1 MG, ONCE DAILY (1 CAPSULE OF 1 MG EVERY 24 HOURS)
     Route: 048
     Dates: start: 201910
  4. URSACOL [Concomitant]
     Active Substance: URSODIOL
     Indication: PRODUCT USED FOR UNKNOWN INDICATION
     Route: 065
     Dates: start: 20111207
  5. PREDNISOLONE. [Concomitant]
     Active Substance: PREDNISOLONE
     Indication: PRODUCT USED FOR UNKNOWN INDICATION
     Route: 065
  6. TACROLIMUS. [Suspect]
     Active Substance: TACROLIMUS
     Indication: LIVER TRANSPLANT
     Dosage: 3 MG, ONCE DAILY (3 CAPSULES OF 1 MG)
     Route: 048
     Dates: start: 20111207, end: 201910
  7. INSULIN [Concomitant]
     Active Substance: INSULIN NOS
     Indication: PRODUCT USED FOR UNKNOWN INDICATION
     Dosage: 10 UNITS, ONCE DAILY AFTER EACH MEAL
     Route: 048
  8. TACROLIMUS. [Suspect]
     Active Substance: TACROLIMUS
     Dosage: 5 MG (1 CAPSULE OF 5 MG), ONCE DAILY
     Route: 048
  9. MYCOPHENOLATE [Concomitant]
     Active Substance: MYCOPHENOLIC ACID
     Indication: PRODUCT USED FOR UNKNOWN INDICATION
     Route: 048
     Dates: start: 20111207
  10. SPIRONOLACTONE. [Concomitant]
     Active Substance: SPIRONOLACTONE
     Indication: PRODUCT USED FOR UNKNOWN INDICATION
     Dosage: 100 MG, ONCE DAILY (FIVE MONTHS AGO)
     Route: 048

REACTIONS (14)
  - Alopecia [Not Recovered/Not Resolved]
  - Pneumonia [Recovering/Resolving]
  - Product use in unapproved indication [Unknown]
  - Headache [Recovering/Resolving]
  - Vomiting [Recovered/Resolved]
  - Gastric haemorrhage [Recovered/Resolved]
  - Fungal infection [Recovered/Resolved]
  - Sepsis [Recovered/Resolved]
  - Swelling [Recovered/Resolved]
  - Liver transplant rejection [Recovering/Resolving]
  - Pyrexia [Recovering/Resolving]
  - Gastric disorder [Recovered/Resolved]
  - Sepsis [Recovered/Resolved]
  - New onset diabetes after transplantation [Recovering/Resolving]

NARRATIVE: CASE EVENT DATE: 201906
